FAERS Safety Report 22142628 (Version 1)
Quarter: 2023Q1

REPORT INFORMATION
  Report Type: Spontaneous
  Country: US (occurrence: US)
  Receive Date: 20230327
  Receipt Date: 20230327
  Transmission Date: 20230418
  Serious: No
  Sender: FDA-Public Use
  Company Number: US-TAKEDA-2023TUS030724

PATIENT
  Sex: Female

DRUGS (2)
  1. LIVTENCITY [Suspect]
     Active Substance: MARIBAVIR
     Indication: Acquired immunodeficiency syndrome
     Dosage: 2 DOSAGE FORM, BID
     Route: 048
  2. LIVTENCITY [Suspect]
     Active Substance: MARIBAVIR
     Indication: HIV infection

REACTIONS (2)
  - Off label use [Unknown]
  - No adverse event [Unknown]
